FAERS Safety Report 5751761-0 (Version None)
Quarter: 2008Q2

REPORT INFORMATION
  Report Type: 
  Country: None (occurrence: None)
  Receive Date: 20080529
  Receipt Date: 20080520
  Transmission Date: 20081010
  Serious: Yes (Other)
  Sender: FDA-Public Use
  Company Number: US-JNJFOC-20080504455

PATIENT
  Sex: Male
  Weight: 136.08 kg

DRUGS (3)
  1. FENTANYL TRANSDERMAL SYSTEM [Suspect]
     Indication: PAIN
     Route: 062
  2. NORVASC [Concomitant]
     Indication: BLOOD PRESSURE
     Route: 048
  3. ADVAIR DISKUS 100/50 [Concomitant]
     Indication: ASTHMA
     Dosage: 50/250MG
     Route: 055

REACTIONS (2)
  - HYPOAESTHESIA [None]
  - LIMB IMMOBILISATION [None]
